FAERS Safety Report 7207248-1 (Version None)
Quarter: 2011Q1

REPORT INFORMATION
  Report Type: 
  Country: None (occurrence: None)
  Receive Date: 20110103
  Receipt Date: 20101230
  Transmission Date: 20110831
  Serious: Yes (Hospitalization)
  Sender: FDA-Public Use
  Company Number: CA-ROCHE-750523

PATIENT
  Sex: Female
  Weight: 63.7 kg

DRUGS (3)
  1. RIBAVIRIN [Suspect]
     Indication: HEPATITIS C
     Dosage: DOSE: UNIT DOSE 200 MG, TOTAL DAILY DOSE:1200MG.
     Route: 048
     Dates: start: 20090210, end: 20090803
  2. PEGINTERFERON ALFA-2A [Suspect]
     Indication: HEPATITIS C
     Dosage: DAILY DOSE: 180UG/ML
     Route: 058
     Dates: start: 20090210, end: 20090803
  3. BLINDED BI 201335 [Suspect]
     Indication: HEPATITIS C
     Route: 048
     Dates: start: 20090210, end: 20090729

REACTIONS (1)
  - OVARIAN CYST RUPTURED [None]
